FAERS Safety Report 8088039-9 (Version None)
Quarter: 2012Q1

REPORT INFORMATION
  Report Type: 
  Country: None (occurrence: None)
  Receive Date: 20120128
  Receipt Date: 20110526
  Transmission Date: 20120608
  Serious: No
  Sender: FDA-Public Use
  Company Number: US-ABBOTT-11P-163-0728898-00

PATIENT
  Sex: Female
  Weight: 81.72 kg

DRUGS (3)
  1. HUMIRA [Suspect]
     Indication: PSORIASIS
     Route: 058
     Dates: start: 20110505, end: 20110505
  2. HUMIRA [Suspect]
     Route: 058
     Dates: start: 20110512
  3. ALBUTEROL [Concomitant]
     Indication: HYPERSENSITIVITY
     Dosage: PRN

REACTIONS (3)
  - INJECTION SITE PAIN [None]
  - INJECTION SITE NODULE [None]
  - INJECTION SITE PRURITUS [None]
